FAERS Safety Report 19276805 (Version 1)
Quarter: 2021Q2

REPORT INFORMATION
  Report Type: Spontaneous
  Country: CN (occurrence: CN)
  Receive Date: 20210519
  Receipt Date: 20210519
  Transmission Date: 20210717
  Serious: Yes (Other)
  Sender: FDA-Public Use
  Company Number: CN-JNJFOC-20210522556

PATIENT
  Age: 74 Year
  Sex: Male
  Weight: 60 kg

DRUGS (2)
  1. ROSUVASTATIN CALCIUM. [Suspect]
     Active Substance: ROSUVASTATIN CALCIUM
     Indication: CEREBRAL HAEMORRHAGE
     Route: 048
     Dates: start: 20210310, end: 20210315
  2. TOPAMAX [Suspect]
     Active Substance: TOPIRAMATE
     Indication: CEREBRAL HAEMORRHAGE
     Route: 048
     Dates: start: 20210309, end: 20210315

REACTIONS (1)
  - Liver function test abnormal [Recovering/Resolving]

NARRATIVE: CASE EVENT DATE: 20210309
